FAERS Safety Report 15260642 (Version 1)
Quarter: 2018Q3

REPORT INFORMATION
  Report Type: Report from Study
  Country: TN (occurrence: TN)
  Receive Date: 20180809
  Receipt Date: 20180809
  Transmission Date: 20181010
  Serious: Yes (Death, Other)
  Sender: FDA-Public Use
  Company Number: TN-SA-2018SA161765

PATIENT
  Age: 69 Year
  Sex: Male

DRUGS (7)
  1. CLOPIDOGREL BISULFATE. [Suspect]
     Active Substance: CLOPIDOGREL BISULFATE
     Indication: MYOCARDIAL INFARCTION
     Dosage: 75 MG, QD
     Route: 048
     Dates: start: 20171024, end: 20171224
  2. CLOPIDOGREL BISULFATE. [Suspect]
     Active Substance: CLOPIDOGREL BISULFATE
     Indication: PROPHYLAXIS
  3. MOPRAL [OMEPRAZOLE] [Concomitant]
     Route: 048
  4. LASILIX [FUROSEMIDE] [Concomitant]
     Route: 048
  5. SINTROM [Concomitant]
     Active Substance: ACENOCOUMAROL
     Route: 048
  6. CORDARONE [Concomitant]
     Active Substance: AMIODARONE HYDROCHLORIDE
     Route: 048
  7. ASPEGIC [Concomitant]
     Active Substance: ASPIRIN DL-LYSINE
     Route: 048

REACTIONS (1)
  - Cardiac arrest [Fatal]

NARRATIVE: CASE EVENT DATE: 20171224
